FAERS Safety Report 15146616 (Version 1)
Quarter: 2018Q4

REPORT INFORMATION
  Report Type: Spontaneous
  Country: US (occurrence: US)
  Receive Date: 20180715
  Receipt Date: 20180715
  Transmission Date: 20190204
  Serious: No
  Sender: FDA-Public Use
  Company Number: US-CEDIPROF, INC.-2052093

PATIENT
  Age: 76 Year
  Sex: Female

DRUGS (5)
  1. MAXIDEX [Concomitant]
     Active Substance: DEXAMETHASONE
  2. VITAMIN D [Concomitant]
     Active Substance: CHOLECALCIFEROL
  3. LISINOPRIL. [Concomitant]
     Active Substance: LISINOPRIL
  4. LEVO-T [Suspect]
     Active Substance: LEVOTHYROXINE SODIUM
     Indication: HYPOTHYROIDISM
     Route: 048
  5. MAGNESIUM [Concomitant]
     Active Substance: MAGNESIUM

REACTIONS (7)
  - Blood thyroid stimulating hormone increased [Recovered/Resolved]
  - Cataract [Recovered/Resolved]
  - Transient ischaemic attack [Recovered/Resolved]
  - Vision blurred [Recovered/Resolved]
  - Onychoclasis [Recovered/Resolved]
  - Swelling face [Recovered/Resolved]
  - Asthenia [Recovered/Resolved]
